FAERS Safety Report 5258232-9 (Version None)
Quarter: 2007Q1

REPORT INFORMATION
  Report Type: 
  Country: None (occurrence: None)
  Receive Date: 20070302
  Receipt Date: 20070227
  Transmission Date: 20070707
  Serious: Yes (Death)
  Sender: FDA-Public Use
  Company Number: 2006-151872-NL

PATIENT
  Age: 27 Year
  Sex: Female

DRUGS (1)
  1. MARVELON [Suspect]
     Indication: CONTRACEPTION
     Dosage: DF NI
     Dates: start: 19920501

REACTIONS (12)
  - ANDROGENS ABNORMAL [None]
  - CARDIAC ARREST [None]
  - COLD SWEAT [None]
  - CYANOSIS [None]
  - DEEP VEIN THROMBOSIS [None]
  - DEHYDRATION [None]
  - HYPOTENSION [None]
  - MUSCULOSKELETAL CHEST PAIN [None]
  - PALPITATIONS [None]
  - PULMONARY EMBOLISM [None]
  - SEPSIS [None]
  - URINE OUTPUT DECREASED [None]
